FAERS Safety Report 13236452 (Version 2)
Quarter: 2017Q1

REPORT INFORMATION
  Report Type: Spontaneous
  Country: JP (occurrence: JP)
  Receive Date: 20170215
  Receipt Date: 20170228
  Transmission Date: 20170428
  Serious: No
  Sender: FDA-Public Use
  Company Number: JP-UCBSA-2017005521

PATIENT
  Age: 5 Decade
  Sex: Male

DRUGS (2)
  1. VIMPAT [Suspect]
     Active Substance: LACOSAMIDE
     Dosage: 100 MG DAILY
  2. VIMPAT [Suspect]
     Active Substance: LACOSAMIDE
     Indication: PRODUCT USED FOR UNKNOWN INDICATION
     Dosage: 100 MG, 2X/DAY (BID)
     Route: 048
     Dates: start: 20160106

REACTIONS (1)
  - Gamma-glutamyltransferase increased [Not Recovered/Not Resolved]
